FAERS Safety Report 13181047 (Version 2)
Quarter: 2017Q1

REPORT INFORMATION
  Report Type: Spontaneous
  Country: US (occurrence: US)
  Receive Date: 20170202
  Receipt Date: 20170329
  Transmission Date: 20170428
  Serious: No
  Sender: FDA-Public Use
  Company Number: US-SMITH AND NEPHEW, INC-2016SMT00393

PATIENT
  Age: 46 Year
  Sex: Male
  Weight: 72.56 kg

DRUGS (2)
  1. COLLAGENASE SANTYL [Suspect]
     Active Substance: COLLAGENASE CLOSTRIDIUM HISTOLYTICUM
     Indication: WOUND
     Dosage: UNK
     Dates: start: 20160422
  2. REGRANEX [Suspect]
     Active Substance: BECAPLERMIN
     Indication: WOUND
     Dosage: UNK UNK, 1X/DAY
     Route: 061
     Dates: start: 20160408, end: 20160422

REACTIONS (4)
  - Urticaria [Unknown]
  - Rash erythematous [Unknown]
  - Off label use [Recovered/Resolved]
  - Application site pruritus [Unknown]

NARRATIVE: CASE EVENT DATE: 201604
